FAERS Safety Report 7988666-0 (Version None)
Quarter: 2011Q4

REPORT INFORMATION
  Report Type: 
  Country: None (occurrence: None)
  Receive Date: 20111218
  Receipt Date: 20111205
  Transmission Date: 20120403
  Serious: Yes (Hospitalization, Other)
  Sender: FDA-Public Use
  Company Number: US-ELI_LILLY_AND_COMPANY-US201111003039

PATIENT
  Sex: Female

DRUGS (7)
  1. CYMBALTA [Suspect]
     Dosage: 30 MG, QOD
     Dates: start: 20110801
  2. CYMBALTA [Suspect]
     Indication: DEPRESSION
     Dosage: 30 MG, BID
     Dates: start: 20110201
  3. WELLBUTRIN [Concomitant]
  4. CYMBALTA [Suspect]
     Dosage: 60 MG, BID
     Dates: start: 20111101
  5. CYMBALTA [Suspect]
     Dosage: 60 MG, EACH MORNING
  6. CYMBALTA [Suspect]
     Dosage: 30 MG, QD
  7. RITALIN [Concomitant]

REACTIONS (18)
  - DRUG WITHDRAWAL SYNDROME [None]
  - PARAESTHESIA [None]
  - MOOD SWINGS [None]
  - HEART RATE IRREGULAR [None]
  - FEELING ABNORMAL [None]
  - AGITATION [None]
  - VOMITING [None]
  - AGGRESSION [None]
  - COGNITIVE DISORDER [None]
  - NAUSEA [None]
  - TREMOR [None]
  - DRUG INEFFECTIVE [None]
  - DEPRESSION [None]
  - MALAISE [None]
  - UTERINE PROLAPSE [None]
  - ARTHROPOD BITE [None]
  - ABSCESS [None]
  - TIC [None]
